FAERS Safety Report 19207251 (Version 1)
Quarter: 2021Q2

REPORT INFORMATION
  Report Type: Spontaneous
  Country: US (occurrence: US)
  Receive Date: 20210503
  Receipt Date: 20210503
  Transmission Date: 20210717
  Serious: Yes (Death, Other)
  Sender: FDA-Public Use
  Company Number: US-JNJFOC-20210455977

PATIENT
  Age: 3 Month
  Sex: Female
  Weight: 4 kg

DRUGS (6)
  1. BOSENTAN. [Suspect]
     Active Substance: BOSENTAN
     Indication: PULMONARY HYPERTENSION
     Route: 065
  2. DIGOXIN. [Concomitant]
     Active Substance: DIGOXIN
  3. SILDENAFIL. [Suspect]
     Active Substance: SILDENAFIL
     Indication: PULMONARY HYPERTENSION
     Route: 065
  4. NITRIC OXIDE. [Suspect]
     Active Substance: NITRIC OXIDE
     Indication: PULMONARY HYPERTENSION
  5. MILRINONE [Concomitant]
     Active Substance: MILRINONE
  6. TREPROSTINIL. [Suspect]
     Active Substance: TREPROSTINIL
     Indication: PULMONARY HYPERTENSION
     Route: 065

REACTIONS (6)
  - Death [Fatal]
  - Off label use [Unknown]
  - Pulmonary hypertension [Unknown]
  - Right ventricular dysfunction [Unknown]
  - Product use in unapproved indication [Unknown]
  - Product use issue [Unknown]
